FAERS Safety Report 5753592-4 (Version None)
Quarter: 2008Q2

REPORT INFORMATION
  Report Type: 
  Country: None (occurrence: None)
  Receive Date: 20080527
  Receipt Date: 20080527
  Transmission Date: 20081010
  Serious: No
  Sender: FDA-Public Use
  Company Number: None

PATIENT
  Age: 72 Year
  Sex: Female
  Weight: 67.1324 kg

DRUGS (2)
  1. FOSAMAX [Suspect]
     Indication: OSTEOPOROSIS
     Dosage: 1 TABLET WITH FULL GLASS WATER 1 X WEEK
     Dates: start: 20060920, end: 20070515
  2. ACTONEL [Suspect]
     Indication: OSTEOPOROSIS
     Dosage: 1 TABLET WITH FULL GLASS WATER 1 X WEEK
     Dates: start: 20070522, end: 20071210

REACTIONS (5)
  - ARTHROPATHY [None]
  - CATARACT [None]
  - MACULAR HOLE [None]
  - PAIN IN EXTREMITY [None]
  - SLEEP DISORDER [None]
